FAERS Safety Report 7305852-3 (Version None)
Quarter: 2011Q1

REPORT INFORMATION
  Report Type: 
  Country: None (occurrence: None)
  Receive Date: 20110210
  Receipt Date: 20110126
  Transmission Date: 20110831
  Serious: Yes (Life-Threatening, Hospitalization, Disabling, Other)
  Sender: FDA-Public Use
  Company Number: 2011-0034

PATIENT
  Age: 41 Year
  Sex: Female
  Weight: 60.5 kg

DRUGS (6)
  1. DYSPORT [Suspect]
     Indication: MUSCLE SPASTICITY
     Dosage: 2000 UNITS (2000 UNITS, SINGLE CYCLE), INTRAMUSCULAR
     Route: 030
     Dates: start: 20100831, end: 20100831
  2. DITROPAN [Concomitant]
  3. UNKNOWN [Concomitant]
  4. NITROFURANTOIN [Concomitant]
  5. ALFUZOSIN HCL [Concomitant]
  6. INTERFERON [Concomitant]

REACTIONS (10)
  - DYSPNOEA [None]
  - DYSPHAGIA [None]
  - DIPLOPIA [None]
  - OVERDOSE [None]
  - MUSCULAR WEAKNESS [None]
  - INCORRECT DOSE ADMINISTERED [None]
  - BOTULISM [None]
  - FATIGUE [None]
  - ASTHENIA [None]
  - EYELID PTOSIS [None]
